FAERS Safety Report 8841885 (Version 1)
Quarter: 2012Q4

REPORT INFORMATION
  Report Type: 
  Country: DE (occurrence: DE)
  Receive Date: 20121016
  Receipt Date: 20121016
  Transmission Date: 20130627
  Serious: Yes (Death, Other)
  Sender: FDA-Public Use
  Company Number: DE-JNJFOC-20121006941

PATIENT

DRUGS (11)
  1. ABCIXIMAB [Suspect]
     Indication: PERCUTANEOUS CORONARY INTERVENTION
     Dosage: 12 hour infusion of 0.125mcg/kg per minute at a maximum dose of 10mcg per minute
     Route: 050
  2. ABCIXIMAB [Suspect]
     Indication: PERCUTANEOUS CORONARY INTERVENTION
     Dosage: 0.25mg per kilogram of body weight given at a concentration of 2000mcg/mL by manual injection
     Route: 050
  3. CLOPIDOGREL [Suspect]
     Indication: PROPHYLAXIS
     Route: 065
  4. CLOPIDOGREL [Suspect]
     Indication: PROPHYLAXIS
     Dosage: loading doses ranging from 300-600mg given after PCI
     Route: 065
  5. CLOPIDOGREL [Suspect]
     Indication: PERCUTANEOUS CORONARY INTERVENTION
     Route: 065
  6. CLOPIDOGREL [Suspect]
     Indication: PERCUTANEOUS CORONARY INTERVENTION
     Dosage: loading doses ranging from 300-600mg given after PCI
     Route: 065
  7. ACETYLSALICYLIC ACID [Suspect]
     Indication: PROPHYLAXIS
     Route: 050
  8. ACETYLSALICYLIC ACID [Suspect]
     Indication: PROPHYLAXIS
     Route: 050
  9. ACETYLSALICYLIC ACID [Suspect]
     Indication: PERCUTANEOUS CORONARY INTERVENTION
     Route: 050
  10. ACETYLSALICYLIC ACID [Suspect]
     Indication: PERCUTANEOUS CORONARY INTERVENTION
     Route: 050
  11. HEPARIN [Suspect]
     Indication: PERCUTANEOUS CORONARY INTERVENTION
     Dosage: given prior to admission
     Route: 040

REACTIONS (5)
  - Death [Fatal]
  - Myocardial infarction [Unknown]
  - Vascular operation [Unknown]
  - Haemorrhage [Unknown]
  - Incorrect route of drug administration [Unknown]
